FAERS Safety Report 14767338 (Version 3)
Quarter: 2019Q2

REPORT INFORMATION
  Report Type: Report from Study
  Country: AU (occurrence: AU)
  Receive Date: 20180417
  Receipt Date: 20190610
  Transmission Date: 20190711
  Serious: Yes (Congenital Anomaly)
  Sender: FDA-Public Use
  Company Number: AU-UCBSA-2018016528

PATIENT
  Sex: Male

DRUGS (2)
  1. LEVETIRACETAM. [Suspect]
     Active Substance: LEVETIRACETAM
     Indication: EPILEPSY
     Dosage: 3000 MG, UNKNOWN
     Route: 064
     Dates: end: 20140201
  2. TOPIRAMATE. [Suspect]
     Active Substance: TOPIRAMATE
     Indication: EPILEPSY
     Dosage: 200 MG
     Route: 064
     Dates: end: 20140201

REACTIONS (2)
  - Maternal exposure during pregnancy [Unknown]
  - Hypospadias [Not Recovered/Not Resolved]
